FAERS Safety Report 10205107 (Version 1)
Quarter: 2014Q2

REPORT INFORMATION
  Report Type: Spontaneous
  Country: US (occurrence: US)
  Receive Date: 20140529
  Receipt Date: 20140529
  Transmission Date: 20141212
  Serious: No
  Sender: FDA-Public Use
  Company Number: US-PFIZER INC-2014144022

PATIENT
  Age: 44 Year
  Sex: Male
  Weight: 116 kg

DRUGS (1)
  1. ADVIL [Suspect]
     Indication: BACK PAIN
     Dosage: 200 MG, UNK
     Route: 048
     Dates: start: 20140522, end: 20140523

REACTIONS (5)
  - Dysphagia [Unknown]
  - Foreign body [Unknown]
  - Oropharyngeal pain [Not Recovered/Not Resolved]
  - Throat irritation [Unknown]
  - Product solubility abnormal [Not Recovered/Not Resolved]
